FAERS Safety Report 9661291 (Version 1)
Quarter: 2013Q4

REPORT INFORMATION
  Report Type: Spontaneous
  Country: HU (occurrence: HU)
  Receive Date: 20131031
  Receipt Date: 20131031
  Transmission Date: 20140711
  Serious: Yes (Other)
  Sender: FDA-Public Use
  Company Number: HU-MYLANLABS-2013S1024432

PATIENT
  Age: 62 Year
  Sex: Male

DRUGS (6)
  1. METFORMIN [Suspect]
     Indication: TYPE 2 DIABETES MELLITUS
  2. METFORMIN [Suspect]
     Indication: TYPE 2 DIABETES MELLITUS
  3. METFORMIN [Suspect]
     Indication: TYPE 2 DIABETES MELLITUS
  4. GLICLAZIDE [Suspect]
     Indication: TYPE 2 DIABETES MELLITUS
  5. GLICLAZIDE [Suspect]
     Indication: TYPE 2 DIABETES MELLITUS
  6. GLIMEPIRID [Concomitant]
     Indication: TYPE 2 DIABETES MELLITUS

REACTIONS (4)
  - Abdominal pain [Recovered/Resolved]
  - Diarrhoea [Recovered/Resolved]
  - Angina pectoris [Recovered/Resolved]
  - Hypoglycaemia [Recovered/Resolved]
